FAERS Safety Report 20106403 (Version 1)
Quarter: 2021Q4

REPORT INFORMATION
  Report Type: Spontaneous
  Country: US (occurrence: US)
  Receive Date: 20211124
  Receipt Date: 20211124
  Transmission Date: 20220303
  Serious: No
  Sender: FDA-Public Use
  Company Number: US-Ipsen Biopharmaceuticals, Inc.-2021-28810

PATIENT
  Age: 51 Year
  Sex: Female

DRUGS (4)
  1. DYSPORT [Suspect]
     Active Substance: ABOBOTULINUMTOXINA
     Indication: Skin wrinkling
     Dosage: TOTAL 75 IU: FOREHEAD-20IU, GLABELLAR- 25IU, CROW^S FEET- 15IU
     Route: 065
     Dates: start: 20211106, end: 20211106
  2. DYSPORT [Suspect]
     Active Substance: ABOBOTULINUMTOXINA
     Indication: Skin wrinkling
  3. DYSPORT [Suspect]
     Active Substance: ABOBOTULINUMTOXINA
     Indication: Skin wrinkling
  4. DYSPORT [Suspect]
     Active Substance: ABOBOTULINUMTOXINA
     Indication: Off label use

REACTIONS (3)
  - Eyelid disorder [Not Recovered/Not Resolved]
  - Product preparation error [Unknown]
  - Off label use [Unknown]

NARRATIVE: CASE EVENT DATE: 20211101
